FAERS Safety Report 5740862-9 (Version None)
Quarter: 2008Q2

REPORT INFORMATION
  Report Type: 
  Country: None (occurrence: None)
  Receive Date: 20080516
  Receipt Date: 20080512
  Transmission Date: 20081010
  Serious: Yes (Other)
  Sender: FDA-Public Use
  Company Number: CA-BOEHRINGER INGELHEIM GMBH, GERMANY-2008-BP-07561RO

PATIENT
  Age: 33 Year
  Sex: Female

DRUGS (31)
  1. DEXAMETHASONE [Suspect]
     Indication: PROPHYLAXIS OF NAUSEA AND VOMITING
     Route: 042
  2. DEXAMETHASONE [Suspect]
     Indication: SEDATION
  3. MORPHINE [Suspect]
     Indication: SEDATION
  4. HYDROMORPHONE HCL [Suspect]
     Indication: SEDATION
  5. PROPRANOLOL [Suspect]
     Indication: ANAESTHESIA
  6. GABAPENTIN [Suspect]
  7. PROPOFOL [Suspect]
     Indication: ANAESTHESIA
  8. ROCURONIUM BROMIDE [Suspect]
     Indication: ANAESTHESIA
  9. CEPHAZOLINE [Suspect]
     Indication: ANAESTHESIA
  10. DESFLURANE [Suspect]
     Indication: ANAESTHESIA
  11. MIDAZOLAM HCL [Concomitant]
     Indication: PSYCHOTIC DISORDER
     Route: 042
  12. MIDAZOLAM HCL [Concomitant]
     Route: 042
  13. MIDAZOLAM HCL [Concomitant]
     Route: 042
  14. MIDAZOLAM HCL [Concomitant]
     Route: 042
  15. MIDAZOLAM HCL [Concomitant]
  16. PROPOFOL [Concomitant]
     Indication: PSYCHOTIC DISORDER
     Route: 042
  17. PROPOFOL [Concomitant]
     Route: 042
  18. PROPOFOL [Concomitant]
     Route: 042
  19. PROPOFOL [Concomitant]
  20. MORPHINE [Concomitant]
     Indication: PSYCHOTIC DISORDER
     Route: 042
  21. FENTANYL CITRATE [Concomitant]
     Indication: PSYCHOTIC DISORDER
     Route: 042
  22. FENTANYL CITRATE [Concomitant]
  23. DROPERIDOL [Concomitant]
     Indication: PSYCHOTIC DISORDER
     Route: 042
  24. CHLORPROMAZINE [Concomitant]
     Indication: PSYCHOTIC DISORDER
     Route: 030
  25. CHLORPROMAZINE [Concomitant]
     Route: 042
  26. HYDROMORPHONE HCL [Concomitant]
     Indication: PSYCHOTIC DISORDER
     Route: 042
  27. HALOPERIDOL [Concomitant]
     Indication: PSYCHOTIC DISORDER
     Route: 030
  28. HALOPERIDOL [Concomitant]
     Route: 030
  29. HALOPERIDOL [Concomitant]
  30. LORAZEPAM [Concomitant]
     Indication: PSYCHOTIC DISORDER
     Route: 042
  31. OLANZAPINE [Concomitant]
     Indication: PSYCHOTIC DISORDER
     Route: 060

REACTIONS (1)
  - PSYCHOTIC DISORDER [None]
